FAERS Safety Report 18551542 (Version 1)
Quarter: 2020Q4

REPORT INFORMATION
  Report Type: Spontaneous
  Country: US (occurrence: US)
  Receive Date: 20201126
  Receipt Date: 20201126
  Transmission Date: 20210114
  Serious: Yes (Other)
  Sender: FDA-Public Use
  Company Number: US-PURDUE-USA-2020-0177339

PATIENT

DRUGS (1)
  1. OXYCONTIN [Suspect]
     Active Substance: OXYCODONE HYDROCHLORIDE
     Indication: PRODUCT USED FOR UNKNOWN INDICATION
     Route: 048

REACTIONS (9)
  - Hepatitis C [Unknown]
  - Nerve injury [Unknown]
  - Drug withdrawal syndrome [Unknown]
  - Emotional distress [Unknown]
  - General physical health deterioration [Unknown]
  - Overdose [Unknown]
  - Pain [Unknown]
  - Mental disorder [Unknown]
  - Drug dependence [Unknown]
